FAERS Safety Report 13288411 (Version 1)
Quarter: 2017Q1

REPORT INFORMATION
  Report Type: Report from Study
  Country: None (occurrence: NL)
  Receive Date: 20170302
  Receipt Date: 20170302
  Transmission Date: 20170428
  Serious: Yes (Death)
  Sender: FDA-Public Use
  Company Number: NL-ABBVIE-17P-114-1891580-00

PATIENT
  Sex: Male

DRUGS (1)
  1. DUODOPA [Suspect]
     Active Substance: CARBIDOPA\LEVODOPA
     Indication: PARKINSON^S DISEASE
     Dosage: MD: 2.4, CD: 5.2, ED: 2.6, CND: 4.4
     Route: 050
     Dates: start: 20120321

REACTIONS (4)
  - Cystitis noninfective [Fatal]
  - Hypophagia [Fatal]
  - Fluid intake reduced [Fatal]
  - General physical health deterioration [Fatal]
